FAERS Safety Report 16099725 (Version 3)
Quarter: 2019Q2

REPORT INFORMATION
  Report Type: Spontaneous
  Country: US (occurrence: US)
  Receive Date: 20190321
  Receipt Date: 20190403
  Transmission Date: 20190711
  Serious: Yes (Other)
  Sender: FDA-Public Use
  Company Number: US-PFIZER INC-2019111401

PATIENT
  Age: 29 Year
  Sex: Female
  Weight: 49 kg

DRUGS (8)
  1. LYRICA [Suspect]
     Active Substance: PREGABALIN
     Indication: FIBROMYALGIA
     Dosage: 50 MG, 2X/DAY
  2. LYRICA [Suspect]
     Active Substance: PREGABALIN
     Indication: THROMBOSIS
  3. LYRICA [Suspect]
     Active Substance: PREGABALIN
     Indication: THROMBOSIS PROPHYLAXIS
  4. MIRENA [Concomitant]
     Active Substance: LEVONORGESTREL
     Indication: MENSTRUATION IRREGULAR
  5. LYRICA [Suspect]
     Active Substance: PREGABALIN
     Indication: POLYNEUROPATHY
     Dosage: 75 MG, 2X/DAY
     Route: 048
     Dates: start: 201812
  6. ELIQUIS [Suspect]
     Active Substance: APIXABAN
     Indication: THROMBOSIS PROPHYLAXIS
     Dosage: 5 MG, 2X/DAY
     Route: 048
     Dates: start: 20180927
  7. MIRENA [Concomitant]
     Active Substance: LEVONORGESTREL
     Indication: FIBROMYALGIA
     Dosage: UNK
     Dates: start: 20181001
  8. LYRICA [Suspect]
     Active Substance: PREGABALIN
     Indication: NEURALGIA
     Dosage: 50 MG, 1X/DAY

REACTIONS (14)
  - Blood glucose decreased [Not Recovered/Not Resolved]
  - Mental impairment [Not Recovered/Not Resolved]
  - Gastrooesophageal reflux disease [Not Recovered/Not Resolved]
  - Irritable bowel syndrome [Not Recovered/Not Resolved]
  - Vomiting [Unknown]
  - Intentional product misuse [Unknown]
  - Product use in unapproved indication [Recovering/Resolving]
  - Condition aggravated [Unknown]
  - Malaise [Unknown]
  - Pollakiuria [Not Recovered/Not Resolved]
  - Hunger [Unknown]
  - Prescribed overdose [Unknown]
  - Micturition urgency [Not Recovered/Not Resolved]
  - Increased appetite [Not Recovered/Not Resolved]

NARRATIVE: CASE EVENT DATE: 201812
